FAERS Safety Report 11557550 (Version 6)
Quarter: 2018Q2

REPORT INFORMATION
  Report Type: Report from Study
  Country: None (occurrence: US)
  Receive Date: 20150926
  Receipt Date: 20180621
  Transmission Date: 20180711
  Serious: Yes (Other)
  Sender: FDA-Public Use
  Company Number: US-ABBVIE-15K-163-1464905-00

PATIENT
  Sex: Female

DRUGS (1)
  1. HUMIRA [Suspect]
     Active Substance: ADALIMUMAB
     Indication: RHEUMATOID ARTHRITIS
     Route: 058
     Dates: start: 2010

REACTIONS (11)
  - Muscle spasms [Unknown]
  - Intervertebral disc degeneration [Unknown]
  - Osteoarthritis [Recovered/Resolved]
  - Hypersensitivity [Unknown]
  - Osteoarthritis [Not Recovered/Not Resolved]
  - Cardiac valve disease [Unknown]
  - Spinal osteoarthritis [Not Recovered/Not Resolved]
  - Fibromyalgia [Unknown]
  - Spinal cord compression [Unknown]
  - Dysgraphia [Recovered/Resolved]
  - Neck pain [Unknown]

NARRATIVE: CASE EVENT DATE: 2010
